FAERS Safety Report 24176637 (Version 1)
Quarter: 2024Q3

REPORT INFORMATION
  Report Type: Spontaneous
  Country: FR (occurrence: FR)
  Receive Date: 20240806
  Receipt Date: 20240806
  Transmission Date: 20241016
  Serious: Yes (Death, Congenital Anomaly)
  Sender: SANDOZ
  Company Number: FR-SANDOZ-SDZ2023FR070629

PATIENT

DRUGS (1)
  1. METHOTREXATE [Suspect]
     Active Substance: METHOTREXATE
     Indication: Psoriasis
     Dosage: NA
     Route: 050

REACTIONS (1)
  - Abortion spontaneous [Fatal]
